FAERS Safety Report 5053562-8 (Version None)
Quarter: 2006Q3

REPORT INFORMATION
  Report Type: 
  Country: None (occurrence: None)
  Receive Date: 20060712
  Receipt Date: 20060626
  Transmission Date: 20061208
  Serious: No
  Sender: FDA-Public Use
  Company Number: 028-20785-06040423

PATIENT
  Age: 71 Year
  Sex: Male

DRUGS (9)
  1. THALOMID [Suspect]
     Indication: MYELOFIBROSIS
     Dosage: 50 MG, 1 IN 1 D, ORAL
     Route: 048
     Dates: start: 20060301
  2. THALOMID [Suspect]
  3. NITRO PATCH (GLYCERYL TRINITRATE) (POULTICE OF PATCH) [Concomitant]
  4. PROPRANOLOL [Concomitant]
  5. URSODIOL (URSODEOXYCHOLIC ACID) [Concomitant]
  6. ATORVASTATIN CALCIUM [Concomitant]
  7. HUMALOG [Concomitant]
  8. FUROSEMIDE [Concomitant]
  9. PREDNISONE TAB [Concomitant]

REACTIONS (1)
  - RECTAL HAEMORRHAGE [None]
